FAERS Safety Report 10221773 (Version 1)
Quarter: 2014Q2

REPORT INFORMATION
  Report Type: Spontaneous
  Country: JP (occurrence: JP)
  Receive Date: 20140606
  Receipt Date: 20140606
  Transmission Date: 20141212
  Serious: No
  Sender: FDA-Public Use
  Company Number: JP-BIOMARINAP-JP-2013-101009

PATIENT
  Age: 21 Year
  Sex: Female

DRUGS (14)
  1. NAGLAZYME [Suspect]
     Indication: MUCOPOLYSACCHARIDOSIS VI
     Dosage: 1 MG/KG, UNK
     Route: 041
     Dates: start: 20070517
  2. NAGLAZYME [Suspect]
     Dosage: 25 MG, UNK
     Route: 041
     Dates: start: 20080410, end: 20100623
  3. NAGLAZYME [Suspect]
     Dosage: 30 MG, UNK
     Route: 041
     Dates: start: 20100707
  4. ACETAMINOPHEN [Concomitant]
     Indication: PREMEDICATION
     Dosage: 200 MG, PRN
     Route: 048
     Dates: start: 20080207
  5. SOLU-CORTEF [Concomitant]
     Indication: PREMEDICATION
     Dosage: 100 MG, PRN
     Route: 042
     Dates: start: 20080918
  6. POLARAMINE [Concomitant]
     Indication: PREMEDICATION
     Dosage: 5 MG, PRN
     Route: 042
     Dates: start: 20081016
  7. MUCOSOLVAN [Concomitant]
     Indication: BRONCHITIS
     Dosage: 15 MG, TID
     Route: 048
     Dates: start: 20121010, end: 20121017
  8. RESPLEN [Concomitant]
     Indication: BRONCHITIS
     Dosage: 1 DF, TID
     Route: 048
     Dates: start: 20121010, end: 20121017
  9. BIO-THREE [Concomitant]
     Indication: DIARRHOEA
     Dosage: UNK, TID
     Route: 048
     Dates: start: 20121017, end: 20121024
  10. BIO-THREE [Concomitant]
     Dosage: 1 G, TID
     Route: 048
     Dates: start: 20121017, end: 20121024
  11. ALBUMIN TANNATE [Concomitant]
     Indication: DIARRHOEA
     Dosage: 0.7 G, TID
     Route: 048
     Dates: start: 20121017, end: 20121024
  12. LOPEMIN [Concomitant]
     Indication: DIARRHOEA
     Dosage: UNK
     Route: 048
     Dates: start: 20121017, end: 20121024
  13. TRAVATANZ [Concomitant]
     Indication: GLAUCOMA
     Dosage: 1 GTT, QD
     Route: 047
     Dates: start: 20100910
  14. RYSMON TG [Concomitant]
     Indication: GLAUCOMA
     Dosage: 1 GTT, QD
     Route: 047
     Dates: start: 20100910

REACTIONS (1)
  - Dysmenorrhoea [Recovering/Resolving]
